FAERS Safety Report 4668064-8 (Version None)
Quarter: 2005Q2

REPORT INFORMATION
  Report Type: 
  Country: None (occurrence: None)
  Receive Date: 20050520
  Receipt Date: 20031001
  Transmission Date: 20051028
  Serious: Yes (Hospitalization, Other)
  Sender: FDA-Public Use
  Company Number: US-MERCK-0310USA00201

PATIENT
  Sex: Female

DRUGS (1)
  1. VIOXX [Suspect]
     Route: 048
     Dates: start: 20010101, end: 20031001

REACTIONS (8)
  - CORONARY ARTERY OCCLUSION [None]
  - DIZZINESS POSTURAL [None]
  - GASTROINTESTINAL ULCER HAEMORRHAGE [None]
  - HAEMATEMESIS [None]
  - INTESTINAL PERFORATION [None]
  - JOINT SWELLING [None]
  - MALAISE [None]
  - OEDEMA PERIPHERAL [None]
